FAERS Safety Report 16375027 (Version 2)
Quarter: 2019Q4

REPORT INFORMATION
  Report Type: Spontaneous
  Country: CA (occurrence: CA)
  Receive Date: 20190531
  Receipt Date: 20191018
  Transmission Date: 20200122
  Serious: Yes (Hospitalization, Other)
  Sender: FDA-Public Use
  Company Number: CA-TEVA-2019-CA-1054803

PATIENT
  Age: 9 Year
  Sex: Male
  Weight: 29 kg

DRUGS (2)
  1. DOXORUBICIN HYDROCHLORIDE INJECTION [Concomitant]
     Active Substance: DOXORUBICIN HYDROCHLORIDE
  2. CISPLATIN INJECTION [Suspect]
     Active Substance: CISPLATIN
     Indication: PRODUCT USED FOR UNKNOWN INDICATION
     Dosage: SOLUTION INTRAVENOUS
     Route: 042

REACTIONS (7)
  - Transaminases increased [Unknown]
  - Hypomagnesaemia [Unknown]
  - Normochromic anaemia [Unknown]
  - Hypophosphataemia [Unknown]
  - Nephropathy toxic [Unknown]
  - Renal failure [Unknown]
  - Renal tubular disorder [Unknown]
